FAERS Safety Report 6459913-1 (Version None)
Quarter: 2009Q4

REPORT INFORMATION
  Report Type: 
  Country: None (occurrence: None)
  Receive Date: 20091129
  Receipt Date: 20091115
  Transmission Date: 20100525
  Serious: Yes (Hospitalization, Other)
  Sender: FDA-Public Use
  Company Number: PHHY2009PL49337

PATIENT
  Age: 10 Year
  Sex: Male

DRUGS (3)
  1. CYCLOSPORINE [Suspect]
     Indication: FOCAL SEGMENTAL GLOMERULOSCLEROSIS
  2. PREDNISONE [Concomitant]
     Indication: FOCAL SEGMENTAL GLOMERULOSCLEROSIS
     Dosage: 60 MG, QD
     Route: 048
  3. PREDNISONE [Concomitant]
     Indication: NEPHROTIC SYNDROME
     Dosage: 60 MG EVERY OTHER DAY

REACTIONS (9)
  - BLOOD MAGNESIUM DECREASED [None]
  - BONE DENSITY ABNORMAL [None]
  - CENTRAL NERVOUS SYSTEM LESION [None]
  - CEREBRAL VENTRICLE DILATATION [None]
  - EYE PAIN [None]
  - HEADACHE [None]
  - LENTICULAR OPACITIES [None]
  - NAUSEA [None]
  - NEUROTOXICITY [None]
